FAERS Safety Report 8275306-9 (Version None)
Quarter: 2012Q2

REPORT INFORMATION
  Report Type: 
  Country: None (occurrence: None)
  Receive Date: 20120411
  Receipt Date: 20120406
  Transmission Date: 20120825
  Serious: Yes (Other)
  Sender: FDA-Public Use
  Company Number: US-PFIZER INC-2011268653

PATIENT
  Sex: Female
  Weight: 92.06 kg

DRUGS (7)
  1. MEDROL [Suspect]
     Indication: RHEUMATOID ARTHRITIS
  2. MEDROL [Suspect]
     Indication: VASCULITIS
  3. MEDROL [Suspect]
     Indication: CONNECTIVE TISSUE INFLAMMATION
  4. MEDROL [Suspect]
     Indication: CONTRACEPTION
  5. MEDROL [Suspect]
     Indication: AUTOIMMUNE DISORDER
     Dosage: 4 MG, 2X/DAY
     Route: 048
     Dates: start: 20070101
  6. MEDROL [Suspect]
     Indication: INFLAMMATION
  7. MEDROL [Suspect]
     Indication: LYMPHATIC DISORDER

REACTIONS (12)
  - POOR QUALITY DRUG ADMINISTERED [None]
  - CHROMATURIA [None]
  - DRUG WITHDRAWAL SYNDROME [None]
  - DRUG INEFFECTIVE [None]
  - ORAL PAIN [None]
  - NEUTROPHIL COUNT INCREASED [None]
  - BLOOD PRESSURE INCREASED [None]
  - ANGIOPATHY [None]
  - RENAL IMPAIRMENT [None]
  - HYPOTHYROIDISM [None]
  - DYSPEPSIA [None]
  - MUSCLE DISORDER [None]
